FAERS Safety Report 9002752 (Version 2)
Quarter: 2013Q4

REPORT INFORMATION
  Report Type: Spontaneous
  Country: US (occurrence: US)
  Receive Date: 20130107
  Receipt Date: 20131007
  Transmission Date: 20140711
  Serious: Yes (Other)
  Sender: FDA-Public Use
  Company Number: US-GLAXOSMITHKLINE-A0998620A

PATIENT
  Age: 50 Year
  Sex: Female
  Weight: 75 kg

DRUGS (10)
  1. BENLYSTA [Suspect]
     Indication: SYSTEMIC LUPUS ERYTHEMATOSUS
     Route: 042
     Dates: start: 201106, end: 201209
  2. EVOXAC [Concomitant]
  3. AMBIEN [Concomitant]
  4. POTASSIUM TARTRATE [Concomitant]
  5. ULTRAM [Concomitant]
  6. PLAVIX [Concomitant]
  7. RECLAST [Concomitant]
  8. PROTONIX [Concomitant]
  9. CELLCEPT [Concomitant]
  10. SYNTHROID [Concomitant]

REACTIONS (2)
  - Depression [Recovered/Resolved]
  - Abnormal behaviour [Recovered/Resolved]
